FAERS Safety Report 6448959-5 (Version None)
Quarter: 2009Q4

REPORT INFORMATION
  Report Type: 
  Country: None (occurrence: None)
  Receive Date: 20091120
  Receipt Date: 20091117
  Transmission Date: 20100525
  Serious: Yes (Hospitalization)
  Sender: FDA-Public Use
  Company Number: A0817824A

PATIENT
  Age: 51 Year
  Sex: Male
  Weight: 113.6 kg

DRUGS (1)
  1. AVANDIA [Suspect]
     Indication: DIABETES MELLITUS
     Dosage: 4MG THREE TIMES PER DAY
     Route: 048
     Dates: start: 19990101, end: 20070501

REACTIONS (3)
  - CHEST PAIN [None]
  - CONDITION AGGRAVATED [None]
  - MYOCARDIAL INFARCTION [None]
